FAERS Safety Report 19276627 (Version 1)
Quarter: 2021Q2

REPORT INFORMATION
  Report Type: Report from Study
  Country: US (occurrence: US)
  Receive Date: 20210519
  Receipt Date: 20210519
  Transmission Date: 20210717
  Serious: Yes (Hospitalization, Other)
  Sender: FDA-Public Use
  Company Number: US-EMD SERONO-9238319

PATIENT
  Sex: Female

DRUGS (1)
  1. REBIF [Suspect]
     Active Substance: INTERFERON BETA-1A
     Indication: MULTIPLE SCLEROSIS
     Route: 058
     Dates: start: 20110331

REACTIONS (9)
  - Dehydration [Unknown]
  - Treatment noncompliance [Unknown]
  - Device breakage [Unknown]
  - Diabetes mellitus [Unknown]
  - Confusional state [Unknown]
  - Fall [Unknown]
  - Headache [Unknown]
  - Depressed mood [Unknown]
  - Multiple sclerosis [Unknown]
